FAERS Safety Report 20538160 (Version 1)
Quarter: 2022Q1

REPORT INFORMATION
  Report Type: Report from Study
  Country: CO (occurrence: CO)
  Receive Date: 20220302
  Receipt Date: 20220302
  Transmission Date: 20220423
  Serious: Yes (Hospitalization, Other)
  Sender: FDA-Public Use
  Company Number: CO-JNJFOC-20210919805

PATIENT
  Age: 35 Year
  Sex: Male
  Weight: 68 kg

DRUGS (5)
  1. INVEGA SUSTENNA [Suspect]
     Active Substance: PALIPERIDONE PALMITATE
     Indication: Schizophrenia
     Route: 030
     Dates: start: 20200107
  2. INVEGA SUSTENNA [Suspect]
     Active Substance: PALIPERIDONE PALMITATE
  3. INVEGA SUSTENNA [Suspect]
     Active Substance: PALIPERIDONE PALMITATE
  4. VALPROIC ACID [Concomitant]
     Active Substance: VALPROIC ACID
     Indication: Product used for unknown indication
     Route: 065
  5. CLOZAPINE [Concomitant]
     Active Substance: CLOZAPINE

REACTIONS (10)
  - Drug abuse [Unknown]
  - Pneumonia [Recovering/Resolving]
  - Accident [Unknown]
  - Victim of crime [Unknown]
  - Injury [Unknown]
  - Internal haemorrhage [Recovering/Resolving]
  - Product dose omission issue [Unknown]
  - Abnormal behaviour [Unknown]
  - Aggression [Unknown]
  - Treatment noncompliance [Unknown]

NARRATIVE: CASE EVENT DATE: 20210618
